FAERS Safety Report 6527379-9 (Version None)
Quarter: 2010Q1

REPORT INFORMATION
  Report Type: 
  Country: None (occurrence: None)
  Receive Date: 20100104
  Receipt Date: 20100104
  Transmission Date: 20100710
  Serious: Yes (Other)
  Sender: FDA-Public Use
  Company Number: None

PATIENT
  Age: 60 Year
  Sex: Female
  Weight: 61.2356 kg

DRUGS (2)
  1. ZYCAM NASAL GEL [Suspect]
     Indication: NASOPHARYNGITIS
     Dates: start: 20050101, end: 20080601
  2. ZYCAM NASAL GEL [Suspect]
     Indication: SINUSITIS
     Dates: start: 20050101, end: 20080601

REACTIONS (1)
  - ANOSMIA [None]
